FAERS Safety Report 8097273-3 (Version None)
Quarter: 2012Q1

REPORT INFORMATION
  Report Type: 
  Country: None (occurrence: None)
  Receive Date: 20120128
  Receipt Date: 20110626
  Transmission Date: 20120608
  Serious: No
  Sender: FDA-Public Use
  Company Number: US-ABBOTT-11P-163-0731234-00

PATIENT
  Age: 37 Year
  Sex: Female

DRUGS (2)
  1. CLONIPINE [Concomitant]
     Indication: ANXIETY
     Route: 048
  2. HUMIRA [Suspect]
     Indication: CROHN'S DISEASE
     Dates: start: 20110408

REACTIONS (6)
  - INCORRECT DOSE ADMINISTERED [None]
  - ANXIETY [None]
  - SUNBURN [None]
  - INJECTION SITE PAIN [None]
  - WRONG TECHNIQUE IN DRUG USAGE PROCESS [None]
  - FEELING JITTERY [None]
